FAERS Safety Report 8392538-X (Version None)
Quarter: 2012Q2

REPORT INFORMATION
  Report Type: 
  Country: None (occurrence: None)
  Receive Date: 20120529
  Receipt Date: 20120518
  Transmission Date: 20120825
  Serious: Yes (Hospitalization)
  Sender: FDA-Public Use
  Company Number: JP-MERCK-1203USA03909

PATIENT
  Age: 74 Year
  Sex: Female

DRUGS (18)
  1. CLARITHROMYCIN [Concomitant]
     Route: 048
  2. PREDNISOLONE [Concomitant]
     Indication: SJOGREN'S SYNDROME
     Route: 048
  3. PREDNISOLONE [Concomitant]
     Indication: INTERSTITIAL LUNG DISEASE
     Route: 048
  4. MEIACT [Concomitant]
     Route: 048
  5. MUCOSTA [Concomitant]
     Route: 048
  6. PREDNISOLONE [Concomitant]
     Indication: INTERSTITIAL LUNG DISEASE
     Route: 048
  7. ACTOSIN [Concomitant]
     Route: 061
  8. FOSAMAX [Suspect]
     Route: 048
     Dates: start: 20040701, end: 20071218
  9. FOSAMAX [Suspect]
     Indication: OSTEOPOROSIS
     Route: 048
     Dates: start: 20071219, end: 20120120
  10. ADALAT CC [Concomitant]
     Route: 048
  11. HYALEIN [Concomitant]
     Route: 047
  12. COTRIM [Concomitant]
     Route: 048
  13. OLMESARTAN MEDOXOMIL [Concomitant]
     Route: 048
  14. PREDNISOLONE [Concomitant]
     Indication: SJOGREN'S SYNDROME
     Route: 048
  15. PEPCID [Concomitant]
     Route: 048
  16. JUVELA [Concomitant]
     Route: 048
  17. ZEFNART [Concomitant]
     Route: 061
  18. HIRUDOID [Concomitant]
     Route: 061

REACTIONS (1)
  - FEMUR FRACTURE [None]
